FAERS Safety Report 20193486 (Version 1)
Quarter: 2021Q4

REPORT INFORMATION
  Report Type: Spontaneous
  Country: US (occurrence: None)
  Receive Date: 20211215
  Receipt Date: 20211215
  Transmission Date: 20220303
  Serious: No
  Sender: FDA-Public Use
  Company Number: None

PATIENT
  Age: 63 Year
  Sex: Female

DRUGS (1)
  1. HUMIRA [Suspect]
     Active Substance: ADALIMUMAB
     Dosage: FREQUENCY: OTHER
     Route: 058
     Dates: start: 202104

REACTIONS (9)
  - Headache [None]
  - Back pain [None]
  - Chest pain [None]
  - Skin mass [None]
  - Intermenstrual bleeding [None]
  - Amenorrhoea [None]
  - Pain in extremity [None]
  - Peripheral swelling [None]
  - Abdominal pain upper [None]

NARRATIVE: CASE EVENT DATE: 20211215
